FAERS Safety Report 17268732 (Version 2)
Quarter: 2020Q1

REPORT INFORMATION
  Report Type: Report from Study
  Country: US (occurrence: US)
  Receive Date: 20200114
  Receipt Date: 20200128
  Transmission Date: 20200409
  Serious: Yes (Hospitalization)
  Sender: FDA-Public Use
  Company Number: US-BIOGEN-2020BI00824687

PATIENT
  Age: 49 Year
  Sex: Female

DRUGS (1)
  1. TECFIDERA [Suspect]
     Active Substance: DIMETHYL FUMARATE
     Indication: MULTIPLE SCLEROSIS
     Dosage: MIANTENANCE DOSE
     Route: 048
     Dates: start: 201911

REACTIONS (5)
  - Contusion [Unknown]
  - Fall [Recovered/Resolved]
  - Mobility decreased [Unknown]
  - Multiple sclerosis relapse [Unknown]
  - Cystitis [Unknown]

NARRATIVE: CASE EVENT DATE: 201912
